FAERS Safety Report 7152333-6 (Version None)
Quarter: 2010Q4

REPORT INFORMATION
  Report Type: 
  Country: None (occurrence: None)
  Receive Date: 20101126
  Receipt Date: 20101111
  Transmission Date: 20110411
  Serious: Yes (Death)
  Sender: FDA-Public Use
  Company Number: 698295

PATIENT
  Age: 32 Year
  Sex: Male

DRUGS (3)
  1. DIAZEPAM [Suspect]
     Indication: AGITATION
     Dosage: 10 MG MILLIGRAM(S), ORAL
     Route: 048
     Dates: start: 20100831, end: 20100908
  2. CLOZAPINE [Suspect]
     Indication: SCHIZOAFFECTIVE DISORDER
     Dosage: 400 MG MILLIGRAM(S), ORAL
     Route: 048
     Dates: start: 20081209, end: 20100908
  3. (THIAMINE) [Concomitant]

REACTIONS (3)
  - CIRCULATORY COLLAPSE [None]
  - DRUG INTERACTION [None]
  - RESPIRATORY ARREST [None]
